FAERS Safety Report 10050444 (Version 1)
Quarter: 2014Q2

REPORT INFORMATION
  Report Type: Report from Study
  Country: US (occurrence: US)
  Receive Date: 20140401
  Receipt Date: 20140401
  Transmission Date: 20141212
  Serious: Yes (Hospitalization)
  Sender: FDA-Public Use
  Company Number: US-ACTELION-A-US2014-96811

PATIENT
  Age: 70 Year
  Sex: Male

DRUGS (3)
  1. VENTAVIS [Suspect]
     Indication: COR PULMONALE CHRONIC
     Dosage: 5 MCG, 6-9X/D
     Route: 055
     Dates: start: 20050706
  2. TRACLEER [Concomitant]
     Indication: COR PULMONALE CHRONIC
     Route: 048
  3. COUMADIN [Concomitant]

REACTIONS (1)
  - Cardiac disorder [Unknown]
